FAERS Safety Report 4630965-4 (Version None)
Quarter: 2005Q2

REPORT INFORMATION
  Report Type: 
  Country: None (occurrence: None)
  Receive Date: 20050406
  Receipt Date: 20050406
  Transmission Date: 20051028
  Serious: No
  Sender: FDA-Public Use
  Company Number: None

PATIENT
  Sex: Female
  Weight: 83.7 kg

DRUGS (4)
  1. DOXORUBICIN HCL [Suspect]
     Dates: start: 20050124
  2. CISPLATIN [Suspect]
  3. PACLITAXEL [Suspect]
  4. G-CSF [Suspect]

REACTIONS (4)
  - DEHYDRATION [None]
  - NAUSEA [None]
  - PULMONARY EMBOLISM [None]
  - VOMITING [None]
